FAERS Safety Report 10064751 (Version 2)
Quarter: 2014Q2

REPORT INFORMATION
  Report Type: Report from Study
  Country: CA (occurrence: CA)
  Receive Date: 20140408
  Receipt Date: 20140411
  Transmission Date: 20141212
  Serious: Yes (Other)
  Sender: FDA-Public Use
  Company Number: CA-JNJFOC-20140403559

PATIENT
  Age: 35 Year
  Sex: Male
  Weight: 81.8 kg

DRUGS (8)
  1. REMICADE [Suspect]
     Indication: COLITIS ULCERATIVE
     Route: 042
     Dates: start: 20131107
  2. REMICADE [Suspect]
     Indication: COLITIS ULCERATIVE
     Route: 042
     Dates: start: 20131026
  3. FERROUS SULPHATE [Concomitant]
     Route: 065
  4. PREDNISONE [Concomitant]
     Route: 065
  5. RANITIDINE [Concomitant]
     Route: 065
  6. ZITHROMYCIN [Concomitant]
     Route: 065
     Dates: start: 20140328
  7. ASACOL [Concomitant]
     Route: 065
  8. VANCOMYCIN [Concomitant]
     Route: 065

REACTIONS (3)
  - Weight decreased [Unknown]
  - Haematochezia [Not Recovered/Not Resolved]
  - Malaise [Unknown]
